FAERS Safety Report 6283552-9 (Version None)
Quarter: 2009Q3

REPORT INFORMATION
  Report Type: 
  Country: None (occurrence: None)
  Receive Date: 20090724
  Receipt Date: 20090420
  Transmission Date: 20100115
  Serious: No
  Sender: FDA-Public Use
  Company Number: US-ALEXION-A200900336

PATIENT
  Sex: Female

DRUGS (13)
  1. SOLIRIS [Suspect]
     Dosage: UNK
     Route: 042
  2. SOLIRIS [Suspect]
     Dosage: 900 MG, SINGLE
     Route: 042
     Dates: start: 20090129, end: 20090129
  3. SOLIRIS [Suspect]
     Dosage: 900 MG, SINGLE
     Route: 042
     Dates: start: 20090219, end: 20090219
  4. SOLIRIS [Suspect]
     Dosage: 900 MG
     Route: 042
     Dates: start: 20090424
  5. SOLIRIS [Suspect]
     Dosage: 900 MG, SINGLE
     Route: 042
     Dates: start: 20090219, end: 20090219
  6. EXJADE [Suspect]
     Indication: IRON OVERLOAD
  7. COUMADIN [Concomitant]
     Dosage: UNK
     Route: 048
  8. FOLIC ACID [Concomitant]
     Dosage: UNK
     Route: 048
  9. CELEXA [Concomitant]
     Dosage: UNK
     Route: 048
  10. BONIVA [Concomitant]
     Dosage: UNK
     Route: 048
  11. ANTIHISTAMINES [Concomitant]
     Dosage: UNK
  12. VITAMIN A [Concomitant]
     Dosage: UNK
     Route: 048
  13. VITAMIN B                          /90046501/ [Concomitant]
     Dosage: UNK
     Route: 048

REACTIONS (2)
  - DIARRHOEA [None]
  - MUSCLE SPASMS [None]
